FAERS Safety Report 5931960-5 (Version None)
Quarter: 2008Q4

REPORT INFORMATION
  Report Type: 
  Country: None (occurrence: None)
  Receive Date: 20081027
  Receipt Date: 20081021
  Transmission Date: 20090506
  Serious: Yes (Other)
  Sender: FDA-Public Use
  Company Number: PHBS2008CN06007

PATIENT
  Age: 39 Year
  Sex: Female

DRUGS (1)
  1. CYCLOSPORINE [Suspect]
     Indication: RENAL TRANSPLANT

REACTIONS (6)
  - ACANTHOSIS [None]
  - ACQUIRED DIGITAL FIBROKERATOMA [None]
  - GINGIVAL HYPERTROPHY [None]
  - HYPERKERATOSIS [None]
  - NEOPLASM SKIN [None]
  - SKIN PAPILLOMA [None]
